FAERS Safety Report 23011520 (Version 2)
Quarter: 2023Q4

REPORT INFORMATION
  Report Type: Spontaneous
  Country: JP (occurrence: JP)
  Receive Date: 20230929
  Receipt Date: 20231030
  Transmission Date: 20240110
  Serious: Yes (Hospitalization)
  Sender: FDA-Public Use
  Company Number: JP-OTSUKA-2023_025344

PATIENT
  Age: 71 Year
  Sex: Male
  Weight: 47.6 kg

DRUGS (7)
  1. NALMEFENE HYDROCHLORIDE DIHYDRATE [Suspect]
     Active Substance: NALMEFENE HYDROCHLORIDE DIHYDRATE
     Indication: Alcoholism
     Dosage: 10 MG X 1 TIME/DAY
     Route: 048
     Dates: start: 20230609, end: 20230621
  2. REXULTI [Suspect]
     Active Substance: BREXPIPRAZOLE
     Indication: Alcoholism
     Dosage: 0.5 MG X 1 TIME/DAY
     Route: 048
     Dates: start: 20230316, end: 20230621
  3. REXULTI [Suspect]
     Active Substance: BREXPIPRAZOLE
     Indication: Anger
  4. LEVETIRACETAM [Concomitant]
     Active Substance: LEVETIRACETAM
     Indication: Epilepsy
     Dosage: 1000/DAY
     Route: 048
     Dates: start: 20160701
  5. DAYVIGO [Concomitant]
     Active Substance: LEMBOREXANT
     Indication: Insomnia
     Dosage: 5MG/DAY
     Route: 048
     Dates: start: 20211023
  6. QUETIAPINE FUMARATE [Concomitant]
     Active Substance: QUETIAPINE FUMARATE
     Indication: Depression
     Dosage: 75MG/DAY
     Route: 048
     Dates: start: 20210802
  7. QUETIAPINE FUMARATE [Concomitant]
     Active Substance: QUETIAPINE FUMARATE
     Indication: Anger

REACTIONS (3)
  - Pyrexia [Recovering/Resolving]
  - Rash [Recovered/Resolved]
  - Product use in unapproved indication [Unknown]

NARRATIVE: CASE EVENT DATE: 20230316
